FAERS Safety Report 22277666 (Version 1)
Quarter: 2023Q2

REPORT INFORMATION
  Report Type: Spontaneous
  Country: IT (occurrence: IT)
  Receive Date: 20230503
  Receipt Date: 20230503
  Transmission Date: 20230722
  Serious: Yes (Other)
  Sender: FDA-Public Use
  Company Number: None

PATIENT
  Age: 72 Year
  Sex: Male

DRUGS (1)
  1. PREDNISONE [Suspect]
     Active Substance: PREDNISONE
     Indication: Autoinflammatory disease
     Dosage: 25 TO 50 MG/DAY- HIGH DOSE
     Route: 048

REACTIONS (4)
  - Spinal fracture [Unknown]
  - Acute myocardial infarction [Unknown]
  - Metabolic syndrome [Unknown]
  - Osteoporosis [Unknown]
